FAERS Safety Report 5000175-X (Version None)
Quarter: 2006Q2

REPORT INFORMATION
  Report Type: 
  Country: None (occurrence: None)
  Receive Date: 20060509
  Receipt Date: 20051012
  Transmission Date: 20061013
  Serious: Yes (Hospitalization)
  Sender: FDA-Public Use
  Company Number: 2005142138

PATIENT
  Age: 46 Year
  Sex: Male

DRUGS (10)
  1. SILDENAFIL CITRATE [Suspect]
     Indication: CARDIAC FAILURE CHRONIC
     Dosage: 120 MG (40 MG, 3 IN 1 D), ORAL
     Route: 048
     Dates: start: 20050615, end: 20050903
  2. WARFARIN SODIUM [Concomitant]
  3. RAMIPRIL [Concomitant]
  4. SIMVASTATIN [Concomitant]
  5. CITALOPRAM HYDROBROMIDE [Concomitant]
  6. LANSOPRAZOLE [Concomitant]
  7. BISOPROLOL FUMARATE [Suspect]
  8. FUROSEMIDE [Concomitant]
  9. CO-CODAMOL    (CODEINE PHOSPHATE, PARACETAMOL) [Concomitant]
  10. SERETIDE              (FLUTICASONE PROPIONATE, SALMETEROL XINAFOATE) [Concomitant]

REACTIONS (1)
  - MUSCULOSKELETAL CHEST PAIN [None]
